FAERS Safety Report 24539087 (Version 2)
Quarter: 2025Q3

REPORT INFORMATION
  Report Type: Report from Study
  Country: EC (occurrence: EC)
  Receive Date: 20241023
  Receipt Date: 20250803
  Transmission Date: 20251021
  Serious: Yes (Other)
  Sender: ALEXION PHARMACEUTICALS
  Company Number: EC-AstraZeneca-CH-00715682A

PATIENT
  Sex: Female

DRUGS (1)
  1. TAGRISSO [Suspect]
     Active Substance: OSIMERTINIB
     Indication: Lung neoplasm malignant
     Dosage: 80 MILLIGRAM, QD
     Dates: start: 20230418

REACTIONS (3)
  - Neoplasm [Not Recovered/Not Resolved]
  - Asthenia [Not Recovered/Not Resolved]
  - Neck pain [Not Recovered/Not Resolved]
